FAERS Safety Report 19901824 (Version 1)
Quarter: 2021Q3

REPORT INFORMATION
  Report Type: Report from Study
  Country: GB (occurrence: GB)
  Receive Date: 20210930
  Receipt Date: 20210930
  Transmission Date: 20211014
  Serious: Yes (Other)
  Sender: FDA-Public Use
  Company Number: GB-ROCHE-2910192

PATIENT
  Age: 66 Year
  Sex: Female
  Weight: 75.3 kg

DRUGS (9)
  1. ATEZOLIZUMAB. [Suspect]
     Active Substance: ATEZOLIZUMAB
     Indication: BILE DUCT CANCER
     Route: 041
     Dates: start: 20210727
  2. APREPITANT. [Concomitant]
     Active Substance: APREPITANT
     Dates: start: 20210727
  3. BEVACIZUMAB. [Suspect]
     Active Substance: BEVACIZUMAB
     Indication: BILE DUCT CANCER
     Route: 042
     Dates: start: 20210727
  4. DOMPERIDONE [Concomitant]
     Active Substance: DOMPERIDONE
     Dates: start: 20210728
  5. DEXAMETHASONE. [Concomitant]
     Active Substance: DEXAMETHASONE
     Dates: start: 20210728
  6. DOCUSATE SODIUM. [Concomitant]
     Active Substance: DOCUSATE SODIUM
     Indication: CONSTIPATION
     Dates: start: 20210731
  7. CISPLATIN. [Suspect]
     Active Substance: CISPLATIN
     Indication: BILE DUCT CANCER
     Dosage: ON DAYS 1 AND 8 OF EACH 21?DAY CYCLE FOR CYCLES 1?8 (AS PER PROTOCOL)
     Route: 042
     Dates: start: 20210727
  8. GEMCITABINE. [Suspect]
     Active Substance: GEMCITABINE
     Indication: BILE DUCT CANCER
     Dosage: ON DAYS 1 AND 8 OF EACH 21?DAY CYCLE FOR CYCLES 1?8 (AS PER PROTOCOL)
     Route: 042
     Dates: start: 20210727
  9. PARACETAMOL [Concomitant]
     Active Substance: ACETAMINOPHEN
     Indication: ABDOMINAL PAIN
     Dates: start: 202105

REACTIONS (1)
  - Blood culture positive [Recovered/Resolved]

NARRATIVE: CASE EVENT DATE: 20210910
